FAERS Safety Report 6730145-2 (Version None)
Quarter: 2010Q2

REPORT INFORMATION
  Report Type: 
  Country: None (occurrence: None)
  Receive Date: 20100513
  Receipt Date: 20100430
  Transmission Date: 20101027
  Serious: Yes (Other)
  Sender: FDA-Public Use
  Company Number: 2010S1002630

PATIENT
  Age: 68 Year
  Sex: Female

DRUGS (5)
  1. PHOSPHOSODA FLAVOR NOT SPECIFIED [Suspect]
     Indication: COLONOSCOPY
     Dosage: PO
     Route: 048
     Dates: start: 20060421, end: 20060421
  2. PREMARIN [Concomitant]
  3. SYNTHROID [Concomitant]
  4. CALCIUM [Concomitant]
  5. ADVIL LIQUI-GELS [Concomitant]

REACTIONS (3)
  - ANAEMIA [None]
  - HYPERTENSION [None]
  - RENAL FAILURE [None]
